FAERS Safety Report 14798545 (Version 1)
Quarter: 2018Q2

REPORT INFORMATION
  Report Type: Spontaneous
  Country: US (occurrence: US)
  Receive Date: 20180424
  Receipt Date: 20180424
  Transmission Date: 20180711
  Serious: Yes (Hospitalization, Other)
  Sender: FDA-Public Use
  Company Number: US-AUROBINDO-AUR-APL-2018-020210

PATIENT
  Age: 67 Year
  Sex: Female

DRUGS (3)
  1. BUPROPION. [Suspect]
     Active Substance: BUPROPION
     Indication: DEPRESSION
     Dosage: UNK
     Route: 065
  2. AMITRIPTYLINE [Suspect]
     Active Substance: AMITRIPTYLINE
     Indication: SINUS TACHYCARDIA
     Dosage: UNK
     Route: 065
  3. FLECAINIDE [Suspect]
     Active Substance: FLECAINIDE
     Indication: SINUS TACHYCARDIA
     Dosage: UNK
     Route: 005

REACTIONS (3)
  - Electrocardiogram QT interval [Unknown]
  - Arrhythmia [Unknown]
  - Hypoxia [Unknown]
